FAERS Safety Report 15404249 (Version 1)
Quarter: 2018Q3

REPORT INFORMATION
  Report Type: Spontaneous
  Country: FR (occurrence: FR)
  Receive Date: 20180919
  Receipt Date: 20180919
  Transmission Date: 20181010
  Serious: Yes (Death, Hospitalization)
  Sender: FDA-Public Use
  Company Number: FR-MYLANLABS-2018M1068438

PATIENT
  Age: 38 Year
  Sex: Male

DRUGS (4)
  1. EPINEPHRINE. [Suspect]
     Active Substance: EPINEPHRINE
     Indication: CARDIO-RESPIRATORY ARREST
     Dosage: 5 MG,
     Route: 065
     Dates: start: 201606, end: 201606
  2. SUXAMETHONIUM [Suspect]
     Active Substance: SUCCINYLCHOLINE
     Indication: PRODUCT USED FOR UNKNOWN INDICATION
     Dosage: 100 MG, UNK
     Route: 065
     Dates: start: 201606, end: 201606
  3. NOREPINEPHRINE. [Suspect]
     Active Substance: NOREPINEPHRINE
     Indication: CARDIO-RESPIRATORY ARREST
     Route: 065
     Dates: start: 201606, end: 201606
  4. LEVOTHYROXINE. [Suspect]
     Active Substance: LEVOTHYROXINE
     Indication: THYROID DISORDER
     Dosage: 75 MG
     Route: 065

REACTIONS (15)
  - Haemodynamic instability [Fatal]
  - Disseminated intravascular coagulation [Fatal]
  - Electrocardiogram ST segment elevation [Fatal]
  - Shock [Fatal]
  - Acute kidney injury [Fatal]
  - Supraventricular tachycardia [Fatal]
  - Nervous system disorder [Fatal]
  - Respiratory failure [Fatal]
  - Cardio-respiratory arrest [Fatal]
  - Hyperkalaemia [Fatal]
  - Heat stroke [Fatal]
  - Lactic acidosis [Fatal]
  - Metabolic acidosis [Fatal]
  - Multiple organ dysfunction syndrome [Fatal]
  - Rhabdomyolysis [Fatal]

NARRATIVE: CASE EVENT DATE: 201606
